FAERS Safety Report 7141678-1 (Version None)
Quarter: 2010Q4

REPORT INFORMATION
  Report Type: 
  Country: None (occurrence: None)
  Receive Date: 20101207
  Receipt Date: 20101129
  Transmission Date: 20110411
  Serious: Yes (Hospitalization)
  Sender: FDA-Public Use
  Company Number: FR-ASTRAZENECA-2010SE56905

PATIENT
  Age: 40 Year
  Sex: Male

DRUGS (1)
  1. PULMICORT [Suspect]
     Indication: BRONCHITIS
     Route: 055
     Dates: start: 20101123

REACTIONS (1)
  - PNEUMONIA LEGIONELLA [None]
